FAERS Safety Report 6172649-X (Version None)
Quarter: 2009Q2

REPORT INFORMATION
  Report Type: 
  Country: None (occurrence: None)
  Receive Date: 20090430
  Receipt Date: 20090423
  Transmission Date: 20091009
  Serious: Yes (Hospitalization, Other)
  Sender: FDA-Public Use
  Company Number: US-BAYER-200918560NA

PATIENT
  Sex: Female

DRUGS (2)
  1. BETASERON [Suspect]
     Indication: MULTIPLE SCLEROSIS
     Dosage: UNK
     Dates: start: 20080101
  2. TYSABRI [Concomitant]
     Dates: start: 20090101

REACTIONS (3)
  - HEADACHE [None]
  - RENAL FAILURE [None]
  - URINARY TRACT INFECTION [None]
